FAERS Safety Report 14752450 (Version 3)
Quarter: 2018Q2

REPORT INFORMATION
  Report Type: Report from Study
  Country: GB (occurrence: GB)
  Receive Date: 20180412
  Receipt Date: 20180530
  Transmission Date: 20180711
  Serious: Yes (Death, Hospitalization, Other)
  Sender: FDA-Public Use
  Company Number: GB-B.I. PHARMACEUTICALS,INC./RIDGEFIELD-2017-BI-050666

PATIENT
  Age: 73 Year
  Sex: Male
  Weight: 75.8 kg

DRUGS (19)
  1. NINTEDANIB [Suspect]
     Active Substance: NINTEDANIB
     Indication: IDIOPATHIC PULMONARY FIBROSIS
     Route: 048
     Dates: start: 20160824, end: 20170913
  2. FUROSEMIDE. [Suspect]
     Active Substance: FUROSEMIDE
     Indication: RIGHT VENTRICULAR FAILURE
     Route: 048
     Dates: start: 20170621
  3. FUROSEMIDE. [Suspect]
     Active Substance: FUROSEMIDE
     Route: 048
     Dates: end: 20171225
  4. LANTUS [Suspect]
     Active Substance: INSULIN GLARGINE
     Route: 058
     Dates: end: 20171225
  5. CARBOCISTEINE [Concomitant]
     Active Substance: CARBOCYSTEINE
     Indication: PRODUCTIVE COUGH
     Route: 048
  6. NINTEDANIB [Suspect]
     Active Substance: NINTEDANIB
     Route: 048
     Dates: start: 20170919, end: 20171225
  7. LANSOPRAZOLE. [Suspect]
     Active Substance: LANSOPRAZOLE
     Indication: GASTROOESOPHAGEAL REFLUX DISEASE
     Route: 048
     Dates: end: 20171225
  8. LOPERAMIDE [Concomitant]
     Active Substance: LOPERAMIDE
     Indication: DIARRHOEA
     Route: 048
  9. AZITHROMYCIN ANHYDROUS. [Concomitant]
     Active Substance: AZITHROMYCIN ANHYDROUS
     Indication: PROPHYLAXIS
     Route: 048
     Dates: end: 20171225
  10. ASPIRIN. [Concomitant]
     Active Substance: ASPIRIN
     Indication: MYOCARDIAL INFARCTION
     Route: 048
  11. LANTUS [Suspect]
     Active Substance: INSULIN GLARGINE
     Indication: TYPE 2 DIABETES MELLITUS
     Route: 058
  12. PLACEBO [Suspect]
     Active Substance: UNSPECIFIED INGREDIENT
     Indication: IDIOPATHIC PULMONARY FIBROSIS
     Route: 048
     Dates: start: 20170712, end: 20170913
  13. SPIRONOLACTONE. [Suspect]
     Active Substance: SPIRONOLACTONE
     Indication: RIGHT VENTRICULAR FAILURE
     Route: 048
     Dates: start: 20170906, end: 20170914
  14. OXYGEN. [Concomitant]
     Active Substance: OXYGEN
     Dosage: UNIT DOE: 2-4 L/MIN
     Route: 055
  15. METFORMIN [Suspect]
     Active Substance: METFORMIN HYDROCHLORIDE
     Indication: TYPE 2 DIABETES MELLITUS
     Route: 048
     Dates: end: 20171225
  16. NOVORAPID [Suspect]
     Active Substance: INSULIN ASPART
     Indication: TYPE 2 DIABETES MELLITUS
     Route: 058
     Dates: end: 20171225
  17. SIMVASTATIN. [Concomitant]
     Active Substance: SIMVASTATIN
     Indication: MYOCARDIAL INFARCTION
     Route: 048
  18. OXYGEN. [Concomitant]
     Active Substance: OXYGEN
     Indication: IDIOPATHIC PULMONARY FIBROSIS
     Dosage: UNIT DOE: 3-4 L/MIN
     Route: 055
  19. AZITHROMYCIN ANHYDROUS. [Concomitant]
     Active Substance: AZITHROMYCIN ANHYDROUS
     Indication: RESPIRATORY TRACT INFECTION

REACTIONS (9)
  - Diarrhoea [Recovered/Resolved]
  - Circulatory collapse [Recovered/Resolved]
  - Hyponatraemia [Unknown]
  - Vomiting [Recovered/Resolved]
  - Pneumonia [Fatal]
  - Cellulitis [Unknown]
  - Right ventricular failure [Not Recovered/Not Resolved]
  - Hypoglycaemia [Recovered/Resolved]
  - Intestinal ischaemia [Fatal]

NARRATIVE: CASE EVENT DATE: 20170906
